FAERS Safety Report 6207504-X (Version None)
Quarter: 2009Q2

REPORT INFORMATION
  Report Type: 
  Country: None (occurrence: None)
  Receive Date: 20090528
  Receipt Date: 20090518
  Transmission Date: 20091009
  Serious: Yes (Death)
  Sender: FDA-Public Use
  Company Number: US-ABBOTT-09P-163-0574560-00

PATIENT
  Sex: Male

DRUGS (2)
  1. DEPAKOTE [Suspect]
     Indication: DEMENTIA
  2. ZYPREXA [Concomitant]
     Indication: DRUG USE FOR UNKNOWN INDICATION
     Dosage: INCREASED BY 50% ONE DAY AFTER ADMISSION

REACTIONS (5)
  - DEHYDRATION [None]
  - MOANING [None]
  - PAIN [None]
  - PNEUMONIA [None]
  - UNRESPONSIVE TO STIMULI [None]
